FAERS Safety Report 4499977-8 (Version None)
Quarter: 2004Q4

REPORT INFORMATION
  Report Type: 
  Country: None (occurrence: None)
  Receive Date: 20041109
  Receipt Date: 20041101
  Transmission Date: 20050328
  Serious: Yes (Death)
  Sender: FDA-Public Use
  Company Number: 04-11-1525

PATIENT
  Sex: Female

DRUGS (1)
  1. CLOZAPINE [Suspect]
     Indication: HUNTINGTON'S CHOREA
     Dosage: 100-200MG QD ORAL
     Route: 048
     Dates: start: 19991201, end: 20041001

REACTIONS (1)
  - PNEUMONIA ASPIRATION [None]
